FAERS Safety Report 7882947-7 (Version None)
Quarter: 2011Q4

REPORT INFORMATION
  Report Type: 
  Country: None (occurrence: None)
  Receive Date: 20111101
  Receipt Date: 20110622
  Transmission Date: 20120403
  Serious: No
  Sender: FDA-Public Use
  Company Number: US-AMGEN-USASP2011032180

PATIENT
  Age: 61 Year
  Sex: Female
  Weight: 79.365 kg

DRUGS (14)
  1. PAROXETINE HCL [Concomitant]
     Dosage: 10 MG, UNK
  2. BROMELAIN [Concomitant]
     Dosage: 100 MG, UNK
  3. LOSARTAN POTASSIUM [Concomitant]
     Dosage: 25 MG, UNK
  4. POTASSIUM [Concomitant]
     Dosage: 25 MEQ, UNK
  5. HUMALOG HUMAJECT [Concomitant]
     Dosage: 100 ML, UNK
  6. LASIX [Concomitant]
     Dosage: 20 MG, UNK
  7. CALCIUM [Concomitant]
     Dosage: 500 MG, UNK
  8. ENBREL [Suspect]
     Indication: PRODUCT USED FOR UNKNOWN INDICATION
     Dosage: 50 MG, QWK
     Route: 058
  9. LOVASTATIN [Concomitant]
     Dosage: 10 MG, UNK
  10. CLONIDINE [Concomitant]
     Dosage: 0.1 MG, UNK
  11. PAXIL [Concomitant]
     Dosage: 10 MG, UNK
  12. LANTUS [Concomitant]
     Dosage: 100 ML, UNK
  13. ASPIRIN [Concomitant]
     Dosage: 325 MG, UNK
  14. LEVOTHROID [Concomitant]
     Dosage: 50 MUG, UNK

REACTIONS (2)
  - INJECTION SITE ERYTHEMA [None]
  - INJECTION SITE PRURITUS [None]
